FAERS Safety Report 4617768-1 (Version None)
Quarter: 2005Q1

REPORT INFORMATION
  Report Type: 
  Country: None (occurrence: None)
  Receive Date: 20050324
  Receipt Date: 20050223
  Transmission Date: 20050727
  Serious: Yes (Hospitalization)
  Sender: FDA-Public Use
  Company Number: 05-02-0176

PATIENT
  Age: 38 Year
  Sex: Male

DRUGS (6)
  1. NICODERM [Suspect]
     Route: 062
  2. CLOZAPINE [Suspect]
     Indication: SCHIZOPHRENIA
     Dates: start: 20000501
  3. EFFEXOR XR [Concomitant]
  4. VITAMIN E [Concomitant]
  5. LOPID [Concomitant]
  6. ABILIFY [Concomitant]

REACTIONS (2)
  - CONFUSIONAL STATE [None]
  - DELIRIUM [None]
